FAERS Safety Report 22242706 (Version 1)
Quarter: 2023Q2

REPORT INFORMATION
  Report Type: Spontaneous
  Country: US (occurrence: US)
  Receive Date: 20230424
  Receipt Date: 20230424
  Transmission Date: 20230721
  Serious: Yes (Other)
  Sender: FDA-Public Use
  Company Number: US-OTSUKA-2023_010287

PATIENT
  Age: 13 Year
  Sex: Male

DRUGS (2)
  1. ABILIFY [Suspect]
     Active Substance: ARIPIPRAZOLE
     Indication: Impulse-control disorder
     Dosage: 5 MG, QD
     Route: 065
  2. ABILIFY [Suspect]
     Active Substance: ARIPIPRAZOLE
     Indication: Aggression
     Dosage: 10 MG
     Route: 065

REACTIONS (4)
  - Lower limb fracture [Unknown]
  - Foot fracture [Unknown]
  - Adverse drug reaction [Unknown]
  - Product use in unapproved indication [Unknown]
